FAERS Safety Report 8062004-X (Version None)
Quarter: 2012Q1

REPORT INFORMATION
  Report Type: 
  Country: None (occurrence: None)
  Receive Date: 20120123
  Receipt Date: 20120111
  Transmission Date: 20120608
  Serious: Yes (Hospitalization)
  Sender: FDA-Public Use
  Company Number: US-BAYER-2010-002193

PATIENT
  Age: 49 Year
  Weight: 63.492 kg

DRUGS (9)
  1. AMITRIPTYLINE HCL [Concomitant]
     Indication: SLEEP DISORDER THERAPY
     Dosage: 20 MG, HS
     Route: 048
  2. PROZAC [Concomitant]
     Dosage: 10 MG, DAILY
  3. LEXAPRO [Concomitant]
     Indication: STRESS
     Dosage: 10 MG, DAILY
     Route: 048
  4. ZYRTEC [Concomitant]
     Indication: MULTIPLE ALLERGIES
     Dosage: 10 MG, DAILY
     Dates: start: 20050101
  5. YASMIN [Suspect]
     Indication: HEADACHE
     Dosage: UNK
     Dates: start: 20050101, end: 20050201
  6. LEXAPRO [Concomitant]
     Indication: ANXIETY
  7. SOMA [Concomitant]
     Dosage: 350 MG, PRN
     Route: 048
  8. FIORICET [Concomitant]
     Indication: HEADACHE
     Dosage: 50-325-40 MG, PRN
     Route: 048
  9. CLARITIN [Concomitant]
     Indication: MULTIPLE ALLERGIES
     Dosage: UNK
     Route: 048
     Dates: start: 20050101

REACTIONS (9)
  - ANHEDONIA [None]
  - VENOUS INJURY [None]
  - PAIN [None]
  - QUALITY OF LIFE DECREASED [None]
  - DEEP VEIN THROMBOSIS [None]
  - THROMBOSIS [None]
  - ANXIETY [None]
  - FEAR [None]
  - MENTAL DISORDER [None]
